FAERS Safety Report 8608702 (Version 4)
Quarter: 2013Q4

REPORT INFORMATION
  Report Type: Spontaneous
  Country: JP (occurrence: JP)
  Receive Date: 20120611
  Receipt Date: 20131031
  Transmission Date: 20140711
  Serious: Yes (Hospitalization)
  Sender: FDA-Public Use
  Company Number: JP-009507513-1206USA01063

PATIENT
  Age: 72 Year
  Sex: Female
  Weight: 50 kg

DRUGS (10)
  1. FOSAMAC TABLETS 35MG [Suspect]
     Indication: OSTEOPOROSIS
     Dosage: 35 MG, QW
     Route: 048
     Dates: start: 20120514, end: 20120514
  2. BAKTAR [Concomitant]
     Dosage: 1 DF, QD
     Route: 048
     Dates: start: 20120401, end: 20120518
  3. PREDNISOLON [Concomitant]
     Indication: ANTINEUTROPHIL CYTOPLASMIC ANTIBODY
     Route: 048
  4. AMLODIN (AMLODIPINE BESYLATE) [Concomitant]
     Indication: HYPERTENSION
     Route: 048
  5. PARIET [Concomitant]
     Dosage: 10 MG, QD
     Route: 048
     Dates: start: 20120401, end: 20120518
  6. FUNGIZONE [Concomitant]
     Route: 048
  7. MAINTATE [Concomitant]
     Route: 048
  8. MAINTATE [Concomitant]
     Dosage: GARGLE - OROPHARINGEAL
  9. ISODINE [Concomitant]
     Dosage: OROPHARYNGEAL GARGLE
     Route: 049
  10. LENDORMIN [Concomitant]
     Route: 048

REACTIONS (1)
  - White blood cell count decreased [Recovered/Resolved]
